FAERS Safety Report 4646894-6 (Version None)
Quarter: 2005Q2

REPORT INFORMATION
  Report Type: 
  Country: None (occurrence: None)
  Receive Date: 20050331
  Receipt Date: 20050216
  Transmission Date: 20051028
  Serious: No
  Sender: FDA-Public Use
  Company Number: 05P-163-0290922-00

PATIENT
  Age: 61 Year
  Sex: Female
  Weight: 89.8122 kg

DRUGS (17)
  1. HUMIRA [Suspect]
     Indication: RHEUMATOID ARTHRITIS
     Dosage: 40 MG, 1 IN 2 WK, SUBCUTANEOUS
     Route: 058
     Dates: start: 20050107
  2. INSULIN LISPRO [Concomitant]
  3. CLARINEX [Concomitant]
  4. PIRBUTEROL ACETATE [Concomitant]
  5. ADVAIR DISKUS 100/50 [Concomitant]
  6. ACETYLSALICYLIC ACID [Concomitant]
  7. DIPRIDONOL [Concomitant]
  8. CARDIA [Concomitant]
  9. HYDROCHLOROTHIAZIDE [Concomitant]
  10. DIPHENOXYLATE [Concomitant]
  11. FUROSEMIDE [Concomitant]
  12. DICYCLOMINE HCL [Concomitant]
  13. LEXAPRO [Concomitant]
  14. POTASSIUM CHLORIDE [Concomitant]
  15. NATEGLINIDE [Concomitant]
  16. TIPIVEFRIN [Concomitant]
  17. ARTIFICIAL TEARS [Concomitant]

REACTIONS (3)
  - ASTHENIA [None]
  - HEADACHE [None]
  - PAIN IN EXTREMITY [None]
